FAERS Safety Report 6983295-X (Version None)
Quarter: 2010Q3

REPORT INFORMATION
  Report Type: 
  Country: None (occurrence: None)
  Receive Date: 20100914
  Receipt Date: 20100726
  Transmission Date: 20110219
  Serious: No
  Sender: FDA-Public Use
  Company Number: US-PFIZER INC-2010094434

PATIENT
  Sex: Male
  Weight: 77.098 kg

DRUGS (4)
  1. LYRICA [Suspect]
     Indication: PAIN
     Dosage: 25 MG, 2X/DAY
     Dates: start: 20100722
  2. LYRICA [Suspect]
     Dosage: (25MG IN MORNING AND 50MG AT NIGHT)
  3. OXYCODONE [Concomitant]
     Indication: PAIN
     Dosage: 10 MG, UNK
  4. METHADONE [Concomitant]
     Indication: PAIN
     Dosage: UNK
     Dates: start: 20100722

REACTIONS (3)
  - BURNING SENSATION [None]
  - GLOSSODYNIA [None]
  - HYPERSENSITIVITY [None]
